FAERS Safety Report 8572494-1 (Version None)
Quarter: 2012Q2

REPORT INFORMATION
  Report Type: 
  Country: None (occurrence: None)
  Receive Date: 20120419
  Receipt Date: 20120419
  Transmission Date: 20120825
  Serious: Yes (Hospitalization)
  Sender: FDA-Public Use
  Company Number: ALL 1-2011-02497

PATIENT
  Age: 19 Year
  Sex: Female
  Weight: 62.6 kg

DRUGS (3)
  1. LIALDA [Suspect]
     Indication: COLITIS ULCERATIVE
     Dosage: 4.8 G, 1X/DAY:QD, ORAL
     Route: 048
     Dates: start: 20080816, end: 20081226
  2. ALBUTEROL [Concomitant]
  3. PREDNISONE TAB [Suspect]
     Indication: PRODUCT USED FOR UNKNOWN INDICATION
     Dosage: (TWO 20 MG TABLETS DAILY), ORAL
     Route: 048

REACTIONS (2)
  - PANCREATITIS [None]
  - COLITIS ULCERATIVE [None]
